FAERS Safety Report 12987157 (Version 2)
Quarter: 2016Q4

REPORT INFORMATION
  Report Type: Report from Study
  Country: US (occurrence: US)
  Receive Date: 20161130
  Receipt Date: 20161227
  Transmission Date: 20170207
  Serious: Yes (Other)
  Sender: FDA-Public Use
  Company Number: US-TAIHO ONCOLOGY INC-EU-2016-02814

PATIENT
  Age: 63 Year
  Sex: Female
  Weight: 52.21 kg

DRUGS (9)
  1. IMODIUM [Concomitant]
     Active Substance: LOPERAMIDE HYDROCHLORIDE
     Indication: DIARRHOEA
  2. LONSURF [Suspect]
     Active Substance: TIPIRACIL HYDROCHLORIDE\TRIFLURIDINE
     Indication: COLORECTAL CANCER STAGE IV
     Dosage: CYCLE 3 STARTED ON 18/NOV/2016
     Route: 048
     Dates: start: 20160919, end: 2016
  3. SANCUSO [Concomitant]
     Active Substance: GRANISETRON
     Indication: NAUSEA
     Dosage: 1 PATCH PRIOR TO EACH 4 DAYS OF LONSURF
  4. HYDROCODONE [Concomitant]
     Active Substance: HYDROCODONE
     Indication: BACK PAIN
     Dosage: 5/325; 1 OR 1/2 PRN
  5. TRAZODONE [Concomitant]
     Active Substance: TRAZODONE HYDROCHLORIDE
     Indication: INSOMNIA
     Dosage: AT BEDTIME
  6. ZOFRAN [Concomitant]
     Active Substance: ONDANSETRON HYDROCHLORIDE
  7. COLECALCIFEROL/CALCIUM [Concomitant]
  8. GABAPENTIN. [Concomitant]
     Active Substance: GABAPENTIN
  9. FENTANYL. [Concomitant]
     Active Substance: FENTANYL

REACTIONS (13)
  - Pulmonary oedema [Unknown]
  - Disease progression [Unknown]
  - Wheezing [Recovered/Resolved]
  - Red blood cell count decreased [Unknown]
  - Cough [Not Recovered/Not Resolved]
  - Weight decreased [Not Recovered/Not Resolved]
  - Dyspnoea [Unknown]
  - Vomiting [Recovered/Resolved]
  - Back pain [Unknown]
  - Nausea [Unknown]
  - Alopecia [Unknown]
  - Nausea [Recovered/Resolved]
  - White blood cell count decreased [Unknown]

NARRATIVE: CASE EVENT DATE: 2016
